FAERS Safety Report 7259939-4 (Version None)
Quarter: 2011Q1

REPORT INFORMATION
  Report Type: 
  Country: None (occurrence: None)
  Receive Date: 20110130
  Receipt Date: 20101006
  Transmission Date: 20110831
  Serious: No
  Sender: FDA-Public Use
  Company Number: US-ABBOTT-10P-163-0676437-00

PATIENT
  Age: 58 Year
  Sex: Female

DRUGS (12)
  1. LOVZA [Concomitant]
     Indication: SUPPLEMENTATION THERAPY
  2. LUNESTA [Concomitant]
     Indication: INSOMNIA
  3. LEVOXYL [Concomitant]
     Indication: HYPOTHYROIDISM
  4. HUMIRA [Suspect]
     Indication: RHEUMATOID ARTHRITIS
     Dates: start: 20090401
  5. TIZANIDINE HC [Concomitant]
     Indication: MUSCLE SPASMS
     Dosage: 4MG QID AS NEEDED
  6. DILTZIAM [Concomitant]
     Indication: BLOOD PRESSURE INCREASED
  7. CLONAZEPAM [Concomitant]
     Indication: INSOMNIA
  8. OXYCODONE [Concomitant]
     Indication: PAIN
     Dosage: 10/325 ONE QID AS NEEDED
  9. FOLIC ACID [Concomitant]
     Indication: HEPATITIS C
  10. CELEBREX [Concomitant]
     Indication: RHEUMATOID ARTHRITIS
  11. HYDROCHLOROTHIAZIDE [Concomitant]
     Indication: FLUID RETENTION
     Dosage: 1 TO 2 TABLETS AS NEEDED
  12. METHOTREXATE [Concomitant]
     Indication: RHEUMATOID ARTHRITIS
     Dosage: 2.5MG FOUR TABLETS WEEKLY

REACTIONS (2)
  - INJECTION SITE VESICLES [None]
  - INJECTION SITE PAIN [None]
